FAERS Safety Report 18606422 (Version 2)
Quarter: 2021Q1

REPORT INFORMATION
  Report Type: Spontaneous
  Country: FR (occurrence: FR)
  Receive Date: 20201211
  Receipt Date: 20210111
  Transmission Date: 20210419
  Serious: Yes (Hospitalization)
  Sender: FDA-Public Use
  Company Number: FR-ALLERGAN-2047678US

PATIENT
  Sex: Male
  Weight: 72.6 kg

DRUGS (7)
  1. FLUOXETIN [Suspect]
     Active Substance: FLUOXETINE HYDROCHLORIDE
     Indication: FLAT AFFECT
     Dosage: 40 MG, QD
     Route: 048
     Dates: start: 202004
  2. TAHOR [Concomitant]
     Active Substance: ATORVASTATIN CALCIUM
     Indication: PROPHYLAXIS
     Dosage: 1 DF, QD
     Route: 048
     Dates: start: 202004
  3. BOTOX [Suspect]
     Active Substance: ONABOTULINUMTOXINA
     Dosage: UNK UNK, SINGLE
     Route: 030
     Dates: start: 20201118, end: 20201118
  4. GABAPENTINE [Suspect]
     Active Substance: GABAPENTIN
     Indication: NEURALGIA
     Route: 048
     Dates: start: 2020
  5. XATRAL [Concomitant]
     Active Substance: ALFUZOSIN
     Route: 048
     Dates: start: 202009
  6. BOTOX [Suspect]
     Active Substance: ONABOTULINUMTOXINA
     Indication: HEMIPLEGIA
     Dosage: UNK UNK, SINGLE
     Route: 030
     Dates: start: 20201118, end: 20201118
  7. BACLOFENE [Suspect]
     Active Substance: BACLOFEN
     Indication: HEMIPLEGIA
     Dosage: 70 MG, QD
     Route: 048
     Dates: start: 202005

REACTIONS (1)
  - Status epilepticus [Recovering/Resolving]

NARRATIVE: CASE EVENT DATE: 20201119
